FAERS Safety Report 17900324 (Version 3)
Quarter: 2020Q3

REPORT INFORMATION
  Report Type: Spontaneous
  Country: US (occurrence: US)
  Receive Date: 20200616
  Receipt Date: 20200707
  Transmission Date: 20201103
  Serious: No
  Sender: FDA-Public Use
  Company Number: US-PFIZER INC-2020229640

PATIENT
  Age: 58 Year
  Sex: Female

DRUGS (1)
  1. IBRANCE [Suspect]
     Active Substance: PALBOCICLIB
     Indication: MONOCLONAL GAMMOPATHY
     Dosage: 125 MG, CYCLIC (DAILY FOR 3 WEEKS ON, THEN 1 WEEK OFF/ DAYS1 TO 21, FOLLOWED BY 7 DAYS REST)
     Route: 048
     Dates: start: 202005

REACTIONS (11)
  - Asthenia [Unknown]
  - Arthralgia [Unknown]
  - Constipation [Unknown]
  - Blood test abnormal [Unknown]
  - Bone pain [Unknown]
  - Product use in unapproved indication [Unknown]
  - Nausea [Unknown]
  - Vomiting [Unknown]
  - Off label use [Unknown]
  - Pyrexia [Unknown]
  - Decreased appetite [Unknown]

NARRATIVE: CASE EVENT DATE: 2020
